FAERS Safety Report 5387649-7 (Version None)
Quarter: 2007Q3

REPORT INFORMATION
  Report Type: 
  Country: None (occurrence: None)
  Receive Date: 20070712
  Receipt Date: 20070712
  Transmission Date: 20080115
  Serious: Yes (Other)
  Sender: FDA-Public Use
  Company Number: None

PATIENT
  Sex: Male
  Weight: 95 kg

DRUGS (1)
  1. PROPOFOL [Suspect]
     Indication: ANAESTHESIA
     Dosage: IV DRIP
     Route: 041
     Dates: start: 20070615, end: 20070615

REACTIONS (4)
  - CHILLS [None]
  - POST PROCEDURAL COMPLICATION [None]
  - PYREXIA [None]
  - TREMOR [None]
